FAERS Safety Report 23056365 (Version 8)
Quarter: 2025Q2

REPORT INFORMATION
  Report Type: Spontaneous
  Country: US (occurrence: US)
  Receive Date: 20231011
  Receipt Date: 20250602
  Transmission Date: 20250717
  Serious: No
  Sender: CALLIDITAS THERAPEUTICS AB
  Company Number: US-Calliditas-2023CAL01299

PATIENT
  Age: 50 Year
  Sex: Female
  Weight: 61.68 kg

DRUGS (10)
  1. TARPEYO [Suspect]
     Active Substance: BUDESONIDE
     Indication: IgA nephropathy
     Dosage: 16 MG (4 MG CAPSULES) ONCE DAILY
     Route: 048
     Dates: start: 20230408, end: 202404
  2. NIFEDIPINE [Concomitant]
     Active Substance: NIFEDIPINE
  3. PRAVASTATIN [Concomitant]
     Active Substance: PRAVASTATIN
  4. ALBUTEROL SULFATE [Concomitant]
     Active Substance: ALBUTEROL SULFATE
  5. DILTIAZEM [Concomitant]
     Active Substance: DILTIAZEM
  6. DILTIAZEM [Concomitant]
     Active Substance: DILTIAZEM
  7. DILACOR XR [Concomitant]
     Active Substance: DILTIAZEM HYDROCHLORIDE
  8. FARXIGA [Concomitant]
     Active Substance: DAPAGLIFLOZIN PROPANEDIOL
  9. FILSPARI [Concomitant]
     Active Substance: SPARSENTAN
  10. LEVOTHYROXINE [Concomitant]
     Active Substance: LEVOTHYROXINE

REACTIONS (15)
  - Protein urine present [Unknown]
  - Peripheral swelling [Recovering/Resolving]
  - Headache [Unknown]
  - Swelling face [Unknown]
  - Product dose omission issue [Recovered/Resolved]
  - Memory impairment [Unknown]
  - COVID-19 [Unknown]
  - Rash pruritic [Unknown]
  - Swelling face [Not Recovered/Not Resolved]
  - Blood pressure increased [Unknown]
  - Face oedema [Unknown]
  - Adverse drug reaction [Unknown]
  - Abdominal distension [Unknown]
  - Constipation [Unknown]
  - Inappropriate schedule of product administration [Recovered/Resolved]
